FAERS Safety Report 8853808 (Version 2)
Quarter: 2012Q4

REPORT INFORMATION
  Report Type: 
  Country: US (occurrence: US)
  Receive Date: 20121022
  Receipt Date: 20121123
  Transmission Date: 20130627
  Serious: Yes (Other)
  Sender: FDA-Public Use
  Company Number: US-JNJFOC-20121008154

PATIENT
  Age: 27 Year
  Sex: Female
  Weight: 84.82 kg

DRUGS (7)
  1. STELARA [Suspect]
     Indication: PSORIASIS
     Route: 058
     Dates: start: 20121031, end: 20121031
  2. STELARA [Suspect]
     Indication: PSORIASIS
     Route: 058
     Dates: start: 20121003, end: 20121003
  3. LUNESTA [Concomitant]
     Indication: PRODUCT USED FOR UNKNOWN INDICATION
     Route: 065
  4. DOVONEX [Concomitant]
     Indication: PSORIASIS
     Dosage: on odd days
     Route: 061
     Dates: start: 201210
  5. DOVONEX [Concomitant]
     Indication: PSORIASIS
     Dosage: on odd days
     Route: 061
     Dates: start: 201201
  6. CLOBEX [Concomitant]
     Indication: PSORIASIS
     Dosage: apply on even nights
     Route: 061
     Dates: start: 201201
  7. CLOBEX [Concomitant]
     Indication: PSORIASIS
     Dosage: apply on even nights
     Route: 061
     Dates: start: 201210

REACTIONS (1)
  - VIIth nerve paralysis [Recovered/Resolved]
